FAERS Safety Report 18586878 (Version 1)
Quarter: 2020Q4

REPORT INFORMATION
  Report Type: Report from Study
  Country: US (occurrence: US)
  Receive Date: 20201207
  Receipt Date: 20201207
  Transmission Date: 20210114
  Serious: Yes (Hospitalization, Other)
  Sender: FDA-Public Use
  Company Number: US-TAKEDA-US202031272

PATIENT
  Age: 44 Year
  Sex: Female

DRUGS (16)
  1. TEDUGLUTIDE [Suspect]
     Active Substance: TEDUGLUTIDE
     Indication: SHORT-BOWEL SYNDROME
     Dosage: 3.5 MILLIGRAM (0.05 MILLIGRAM/KILOGRAM DAILY DOSE), 7 DOSES PER WEEK
     Route: 065
     Dates: start: 20180528, end: 20180719
  2. SODIUM CHLORIDE. [Concomitant]
     Active Substance: SODIUM CHLORIDE
     Indication: DYSPHAGIA
     Dosage: 1000 MILLILITER
     Route: 042
     Dates: start: 20200911, end: 20200916
  3. POTASSIUM CHLORIDE. [Concomitant]
     Active Substance: POTASSIUM CHLORIDE
     Indication: ACUTE KIDNEY INJURY
     Dosage: UNK UNK, Q1HR
     Route: 042
     Dates: start: 20200913, end: 20200913
  4. SODIUM BICARBONATE. [Concomitant]
     Active Substance: SODIUM BICARBONATE
     Indication: ACUTE KIDNEY INJURY
     Dosage: 650 MILLIGRAM, BID
     Route: 048
     Dates: start: 20200913, end: 20200915
  5. TEDUGLUTIDE [Suspect]
     Active Substance: TEDUGLUTIDE
     Dosage: 3.5 MILLIGRAM (0.05 MILLIGRAM/KILOGRAM DAILY DOSE), 3 DOSES PER WEEK
     Route: 065
     Dates: start: 20180719, end: 2019
  6. DEXTROSE. [Concomitant]
     Active Substance: DEXTROSE
     Indication: DYSPHAGIA
  7. TEDUGLUTIDE [Suspect]
     Active Substance: TEDUGLUTIDE
     Indication: SHORT-BOWEL SYNDROME
     Dosage: 3.5 MILLIGRAM (0.05 MILLIGRAM/KILOGRAM DAILY DOSE), 7 DOSES PER WEEK
     Route: 065
     Dates: start: 20180528, end: 20180719
  8. TEDUGLUTIDE [Suspect]
     Active Substance: TEDUGLUTIDE
     Dosage: 3.5 MILLIGRAM (0.05 MILLIGRAM/KILOGRAM DAILY DOSE), 3 DOSES PER WEEK
     Route: 065
     Dates: start: 20180719, end: 2019
  9. TEDUGLUTIDE [Suspect]
     Active Substance: TEDUGLUTIDE
     Dosage: 3.5 MILLIGRAM (0.05 MILLIGRAM/KILOGRAM DAILY DOSE), 3 DOSES PER WEEK
     Route: 065
     Dates: start: 20180719, end: 2019
  10. TEDUGLUTIDE [Suspect]
     Active Substance: TEDUGLUTIDE
     Indication: SHORT-BOWEL SYNDROME
     Dosage: 3.5 MILLIGRAM (0.05 MILLIGRAM/KILOGRAM DAILY DOSE), 7 DOSES PER WEEK
     Route: 065
     Dates: start: 20180528, end: 20180719
  11. PARICALCITOL. [Concomitant]
     Active Substance: PARICALCITOL
     Indication: ACUTE KIDNEY INJURY
     Dosage: 4 MICROGRAM, QD
     Route: 042
     Dates: start: 20200915, end: 20200916
  12. TEDUGLUTIDE [Suspect]
     Active Substance: TEDUGLUTIDE
     Indication: SHORT-BOWEL SYNDROME
     Dosage: 3.5 MILLIGRAM (0.05 MILLIGRAM/KILOGRAM DAILY DOSE), 7 DOSES PER WEEK
     Route: 065
     Dates: start: 20180528, end: 20180719
  13. TEDUGLUTIDE [Suspect]
     Active Substance: TEDUGLUTIDE
     Dosage: 3.5 MILLIGRAM (0.05 MILLIGRAM/KILOGRAM DAILY DOSE), 3 DOSES PER WEEK
     Route: 065
     Dates: start: 20180719, end: 2019
  14. SODIUM CHLORIDE. [Concomitant]
     Active Substance: SODIUM CHLORIDE
     Indication: ACUTE KIDNEY INJURY
  15. PANTOPRAZOLE [Concomitant]
     Active Substance: PANTOPRAZOLE
     Indication: DYSPHAGIA
  16. MAGNESIUM SULFATE. [Concomitant]
     Active Substance: MAGNESIUM SULFATE
     Indication: DYSPHAGIA

REACTIONS (2)
  - Abdominal pain [Recovered/Resolved]
  - Acute kidney injury [Recovered/Resolved]

NARRATIVE: CASE EVENT DATE: 20200901
